FAERS Safety Report 23581495 (Version 1)
Quarter: 2024Q1

REPORT INFORMATION
  Report Type: Spontaneous
  Country: IN (occurrence: IN)
  Receive Date: 20240229
  Receipt Date: 20240229
  Transmission Date: 20240410
  Serious: Yes (Other)
  Sender: FDA-Public Use
  Company Number: IN-002147023-NVSC2024IN038998

PATIENT

DRUGS (1)
  1. RUXOLITINIB [Suspect]
     Active Substance: RUXOLITINIB
     Indication: Primary myelofibrosis
     Dosage: 5 MG, BID
     Route: 048
     Dates: start: 20230809

REACTIONS (14)
  - Eosinophil count [Unknown]
  - Porphyria acute [Unknown]
  - Haemoglobin [Unknown]
  - Liver iron concentration abnormal [Unknown]
  - Lymphocyte count [Unknown]
  - Mean cell haemoglobin [Unknown]
  - Mean cell haemoglobin concentration [Unknown]
  - Monocyte count [Unknown]
  - Myeloblast count [Unknown]
  - Neutrophil count [Unknown]
  - Normocytic anaemia [Unknown]
  - Platelet distribution width abnormal [Unknown]
  - Red cell distribution width increased [Unknown]
  - Differential white blood cell count abnormal [Unknown]
